FAERS Safety Report 10368765 (Version 1)
Quarter: 2014Q1

REPORT INFORMATION
  Report Type: Spontaneous
  Country: US (occurrence: None)
  Receive Date: 20140306
  Receipt Date: 20140306
  Transmission Date: 20141002
  Serious: Yes (Hospitalization)
  Sender: FDA-Public Use
  Company Number: 163-21880-13022901

PATIENT
  Age: 69 Year
  Sex: Male

DRUGS (13)
  1. REVLIMID (LENALIDOMIDE) (CAPSULES) [Suspect]
     Dosage: 10 MG , EVEN DAYS, PO  11/03/2010 - 01/17/2013 THERAPY DATES
     Route: 048
     Dates: start: 20101103, end: 20130117
  2. LEVOFLOXAIN [Concomitant]
  3. CALCITRIOL [Concomitant]
  4. ACYCLOVIR (ACICLOVIR) (ACICLOVIR) [Concomitant]
  5. FREESYTLE LANCETS (ALL OTHER THERAPEUTIC PRODUCTS) [Concomitant]
  6. RAMIPRIL [Concomitant]
  7. CARVEDILOL [Concomitant]
  8. SPIRONOLACTONE [Concomitant]
  9. FREESTYLE LITE  BLOOD GLUCOSE (ALL OTHER THERAPEUTIC PRODUCTS) [Concomitant]
  10. MORPHINE SULFATE [Concomitant]
  11. LEVETIRACETAM [Concomitant]
  12. PARPXETINE [Concomitant]
  13. OXYCONTIN (OXYCODONE) (OXYCODONE) [Concomitant]

REACTIONS (3)
  - Anaemia [None]
  - Neutropenia [None]
  - Thrombocytopenia [None]
